FAERS Safety Report 25701896 (Version 1)
Quarter: 2025Q3

REPORT INFORMATION
  Report Type: Spontaneous
  Country: US (occurrence: US)
  Receive Date: 20250819
  Receipt Date: 20250819
  Transmission Date: 20251020
  Serious: No
  Sender: GALPHARM INTERNATIONAL
  Company Number: US-PERRIGO-24US011534

PATIENT
  Sex: Female
  Weight: 53.515 kg

DRUGS (1)
  1. MINOXIDIL [Suspect]
     Active Substance: MINOXIDIL
     Indication: Alopecia
     Dosage: 1 ML, BID
     Route: 061
     Dates: start: 20241207, end: 20241212

REACTIONS (7)
  - Application site burn [Recovering/Resolving]
  - Application site exfoliation [Recovering/Resolving]
  - Pruritus [Recovered/Resolved]
  - Dry skin [Recovering/Resolving]
  - Application site pruritus [Recovering/Resolving]
  - Accidental exposure to product [Unknown]
  - Product administered at inappropriate site [Recovered/Resolved]

NARRATIVE: CASE EVENT DATE: 20241207
